FAERS Safety Report 8946357 (Version 1)
Quarter: 2012Q4

REPORT INFORMATION
  Report Type: 
  Country: US (occurrence: US)
  Receive Date: 20121204
  Receipt Date: 20121204
  Transmission Date: 20130627
  Serious: No
  Sender: FDA-Public Use
  Company Number: US-AMGEN-USASP2012077092

PATIENT
  Age: 30 Year
  Sex: Female

DRUGS (6)
  1. ENBREL [Suspect]
     Indication: PSORIATIC ARTHROPATHY
     Dosage: 50 mg, qwk
     Dates: start: 20101120, end: 201206
  2. METHOTREXATE [Concomitant]
     Dosage: 0.8 mg, qwk
     Dates: start: 2009
  3. LEFLUNOMIDE [Concomitant]
     Dosage: 20 mg, qd
     Dates: start: 2010
  4. SIMPONI [Concomitant]
     Dosage: UNK
  5. HUMIRA [Concomitant]
     Dosage: UNK
  6. PREDNISONE                         /00044702/ [Concomitant]
     Dosage: UNK

REACTIONS (6)
  - Arthralgia [Not Recovered/Not Resolved]
  - Joint swelling [Not Recovered/Not Resolved]
  - Fatigue [Not Recovered/Not Resolved]
  - Musculoskeletal stiffness [Not Recovered/Not Resolved]
  - Diarrhoea [Unknown]
  - Abdominal discomfort [Unknown]
